FAERS Safety Report 18628687 (Version 1)
Quarter: 2020Q4

REPORT INFORMATION
  Report Type: Spontaneous
  Country: US (occurrence: US)
  Receive Date: 20201217
  Receipt Date: 20201217
  Transmission Date: 20210114
  Serious: No
  Sender: FDA-Public Use
  Company Number: None

PATIENT
  Age: 70 Year
  Sex: Male

DRUGS (4)
  1. LUPRON [Concomitant]
     Active Substance: LEUPROLIDE ACETATE
  2. ERLEADA [Suspect]
     Active Substance: APALUTAMIDE
     Route: 048
  3. VITAMIN D [Concomitant]
     Active Substance: VITAMIN D NOS
  4. IRON [Concomitant]
     Active Substance: IRON

REACTIONS (1)
  - Hospice care [None]

NARRATIVE: CASE EVENT DATE: 20201217
